FAERS Safety Report 16268367 (Version 3)
Quarter: 2019Q2

REPORT INFORMATION
  Report Type: Spontaneous
  Country: JP (occurrence: JP)
  Receive Date: 20190503
  Receipt Date: 20190619
  Transmission Date: 20190711
  Serious: Yes (Other)
  Sender: FDA-Public Use
  Company Number: JP-AMGEN-JPNSP2019068173

PATIENT
  Age: 65 Year
  Sex: Female
  Weight: 74.5 kg

DRUGS (4)
  1. PARSABIV [Suspect]
     Active Substance: ETELCALCETIDE HYDROCHLORIDE
     Indication: HYPERPARATHYROIDISM SECONDARY
     Dosage: 5 MILLIGRAM, 3 TIMES/WK
     Route: 010
     Dates: start: 20180907
  2. FULSTAN [Concomitant]
     Dosage: 0.3 MICROGRAM, 4 TIMES/WK
     Route: 048
     Dates: start: 20180521
  3. EPOGIN [Concomitant]
     Active Substance: ERYTHROPOIETIN
     Dosage: 4500 INTERNATIONAL UNIT, QWK
     Route: 065
  4. FESIN [SACCHARATED IRON OXIDE] [Concomitant]
     Dosage: 40 MILLIGRAM, QWK
     Route: 065

REACTIONS (2)
  - Shunt stenosis [Recovered/Resolved]
  - Interstitial lung disease [Not Recovered/Not Resolved]

NARRATIVE: CASE EVENT DATE: 20181212
